FAERS Safety Report 4591061-8 (Version None)
Quarter: 2005Q1

REPORT INFORMATION
  Report Type: 
  Country: None (occurrence: None)
  Receive Date: 20050222
  Receipt Date: 20050222
  Transmission Date: 20050727
  Serious: No
  Sender: FDA-Public Use
  Company Number: None

PATIENT
  Age: 50 Year
  Sex: Female

DRUGS (8)
  1. ROSUVASTATIN [Suspect]
     Indication: HYPERLIPIDAEMIA
     Dosage: 20 MG  DAILY ORAL
     Route: 048
     Dates: start: 20030101, end: 20041026
  2. NOVOLIN R [Concomitant]
  3. PROVENTIL [Concomitant]
  4. KEPPRA [Concomitant]
  5. ULTRAM [Concomitant]
  6. LOPRESSOR [Concomitant]
  7. ALDACTONE [Concomitant]
  8. PLAVIX [Concomitant]

REACTIONS (2)
  - BLOOD CREATINE PHOSPHOKINASE INCREASED [None]
  - PAIN IN EXTREMITY [None]
